FAERS Safety Report 4965221-8 (Version None)
Quarter: 2006Q1

REPORT INFORMATION
  Report Type: 
  Country: None (occurrence: None)
  Receive Date: 20060201
  Receipt Date: 20051212
  Transmission Date: 20060701
  Serious: No
  Sender: FDA-Public Use
  Company Number: FACT0500724

PATIENT
  Age: 35 Year
  Sex: Female
  Weight: 77.1 kg

DRUGS (1)
  1. FACTIVE [Suspect]
     Indication: RESPIRATORY TRACT INFECTION BACTERIAL
     Dosage: 320MG QD ORAL
     Route: 048
     Dates: start: 20051125, end: 20051129

REACTIONS (1)
  - RASH [None]
